FAERS Safety Report 5813797-0 (Version None)
Quarter: 2008Q3

REPORT INFORMATION
  Report Type: 
  Country: None (occurrence: None)
  Receive Date: 20080717
  Receipt Date: 20080715
  Transmission Date: 20090109
  Serious: Yes (Life-Threatening, Hospitalization, Other)
  Sender: FDA-Public Use
  Company Number: PHHY2008ES13986

PATIENT
  Age: 42 Year
  Sex: Female

DRUGS (7)
  1. VOLTAREN [Suspect]
     Dosage: 100 MG PER DAY
     Route: 048
     Dates: start: 20080101
  2. DOPUPAL [Concomitant]
     Dosage: 75 MG IN BREAKFAST AND 150 MG AT NIGHT
     Route: 048
     Dates: start: 20080101
  3. ALAPRYL [Concomitant]
     Dosage: 40 MG DAILY
     Route: 048
     Dates: start: 20080101
  4. STRATTERA [Concomitant]
     Indication: MIGRAINE
     Dosage: 40 MG AT BREAKFAST AND 60 MG AT NIGHT
     Route: 048
     Dates: start: 20080606, end: 20080607
  5. RELPAX [Concomitant]
     Indication: MIGRAINE
     Dosage: 40 MG PER DAY
     Route: 048
     Dates: start: 20080606, end: 20080607
  6. DUPHALAC                                /NET/ [Concomitant]
     Dosage: UNK
  7. PANTOPRAZOLE SODIUM [Concomitant]
     Dosage: UNK

REACTIONS (10)
  - ACUTE CORONARY SYNDROME [None]
  - BLOOD CREATINE PHOSPHOKINASE INCREASED [None]
  - CHEST PAIN [None]
  - DRUG INTERACTION [None]
  - ELECTROCARDIOGRAM ABNORMAL [None]
  - HEADACHE [None]
  - HYPERTENSION [None]
  - MALAISE [None]
  - NASOPHARYNGEAL SURGERY [None]
  - TROPONIN INCREASED [None]
